FAERS Safety Report 5241657-5 (Version None)
Quarter: 2007Q1

REPORT INFORMATION
  Report Type: 
  Country: None (occurrence: None)
  Receive Date: 20070215
  Receipt Date: 20070215
  Transmission Date: 20070707
  Serious: Yes (Other)
  Sender: FDA-Public Use
  Company Number: None

PATIENT
  Age: 85 Year
  Sex: Female
  Weight: 53.1 kg

DRUGS (1)
  1. BONIVA [Suspect]
     Indication: OSTEOPOROSIS
     Dosage: 3MG 1ST DOSE IV BOLUS 1 TIME DOSE
     Route: 040
     Dates: start: 20061222, end: 20061222

REACTIONS (10)
  - ARTHRALGIA [None]
  - CHILLS [None]
  - DIZZINESS POSTURAL [None]
  - DYSGEUSIA [None]
  - FATIGUE [None]
  - FEELING ABNORMAL [None]
  - MEMORY IMPAIRMENT [None]
  - MYALGIA [None]
  - NIPPLE PAIN [None]
  - PYREXIA [None]
